FAERS Safety Report 18233152 (Version 5)
Quarter: 2021Q1

REPORT INFORMATION
  Report Type: Report from Study
  Country: US (occurrence: US)
  Receive Date: 20200904
  Receipt Date: 20210203
  Transmission Date: 20210419
  Serious: No
  Sender: FDA-Public Use
  Company Number: NVSC2020US242461

PATIENT
  Sex: Female

DRUGS (1)
  1. COSENTYX [Suspect]
     Active Substance: SECUKINUMAB
     Indication: PSORIATIC ARTHROPATHY
     Dosage: UNK, EVERY 4 WEEKS AFTER LOADING HAS JUST BEEN COMPLETED
     Route: 058

REACTIONS (2)
  - Pain [Recovering/Resolving]
  - Emotional disorder [Unknown]
